FAERS Safety Report 6655274-3 (Version None)
Quarter: 2010Q1

REPORT INFORMATION
  Report Type: 
  Country: None (occurrence: None)
  Receive Date: 20100324
  Receipt Date: 20100303
  Transmission Date: 20100710
  Serious: Yes (Hospitalization)
  Sender: FDA-Public Use
  Company Number: FR-SOLVAY-00303003599

PATIENT
  Age: 46 Year
  Sex: Female

DRUGS (4)
  1. FLUVOXAMINE MALEATE [Suspect]
     Indication: ILL-DEFINED DISORDER
     Dosage: 100 MILLIGRAM(S), ORAL
     Route: 048
     Dates: start: 19960101, end: 20031105
  2. ZYPREXA [Suspect]
     Indication: ILL-DEFINED DISORDER
     Dosage: 7.5 MILLIGRAM(S), ORAL
     Route: 048
     Dates: start: 20031008, end: 20031105
  3. LORAZEPAM [Concomitant]
  4. ZOLPIDEM TARTRATE [Concomitant]

REACTIONS (3)
  - CARDIAC FAILURE [None]
  - CONGESTIVE CARDIOMYOPATHY [None]
  - DYSPNOEA [None]
